FAERS Safety Report 14944041 (Version 1)
Quarter: 2018Q2

REPORT INFORMATION
  Report Type: Spontaneous
  Country: US (occurrence: US)
  Receive Date: 20180528
  Receipt Date: 20180528
  Transmission Date: 20180711
  Serious: No
  Sender: FDA-Public Use
  Company Number: US-009507513-1805USA012242

PATIENT
  Age: 29 Year
  Weight: 70.3 kg

DRUGS (2)
  1. NUVARING [Suspect]
     Active Substance: ETHINYL ESTRADIOL\ETONOGESTREL
     Indication: CONTRACEPTION
     Dosage: 1 RING VAGINALLY FOR 3 WEEKS, ONE RING FREE WEEK
     Route: 067
     Dates: start: 20180424
  2. NUVARING [Suspect]
     Active Substance: ETHINYL ESTRADIOL\ETONOGESTREL
     Dosage: 1 RING VAGINALLY FOR 3 WEEKS, ONE RING FREE WEEK
     Route: 067

REACTIONS (7)
  - Product quality issue [Unknown]
  - Maternal exposure before pregnancy [Unknown]
  - Uterine operation [Not Recovered/Not Resolved]
  - Polycystic ovaries [Not Recovered/Not Resolved]
  - Uterine dilation and curettage [Not Recovered/Not Resolved]
  - Amenorrhoea [Not Recovered/Not Resolved]
  - Accidental overdose [Unknown]

NARRATIVE: CASE EVENT DATE: 20130514
